FAERS Safety Report 12430003 (Version 1)
Quarter: 2016Q2

REPORT INFORMATION
  Report Type: Spontaneous
  Country: US (occurrence: US)
  Receive Date: 20160602
  Receipt Date: 20160602
  Transmission Date: 20160815
  Serious: No
  Sender: FDA-Public Use
  Company Number: US-KADMON PHARMACEUTICALS, LLC-KAD201512-004247

PATIENT
  Sex: Female

DRUGS (1)
  1. RIBAVIRIN. [Suspect]
     Active Substance: RIBAVIRIN

REACTIONS (3)
  - Platelet count decreased [Unknown]
  - Alpha 1 foetoprotein increased [Unknown]
  - Blood glucose increased [Unknown]
